FAERS Safety Report 6677948-0 (Version None)
Quarter: 2010Q2

REPORT INFORMATION
  Report Type: 
  Country: None (occurrence: None)
  Receive Date: 20100412
  Receipt Date: 20100330
  Transmission Date: 20101027
  Serious: Yes (Hospitalization)
  Sender: FDA-Public Use
  Company Number: FR-ELI_LILLY_AND_COMPANY-FR201002006177

PATIENT
  Age: 67 Year
  Sex: Female
  Weight: 63 kg

DRUGS (4)
  1. FORTEO [Suspect]
     Indication: OSTEOPOROSIS
     Dosage: 20 UG, DAILY (1/D)
     Route: 058
     Dates: start: 20080907
  2. AMLODINE [Concomitant]
     Indication: HYPERTENSION
     Dosage: UNK, UNKNOWN
     Route: 048
  3. LEVOTHYROX [Concomitant]
     Indication: HYPOTHYROIDISM
     Dosage: UNK, UNKNOWN
     Route: 048
  4. CACIT D3 [Concomitant]
     Indication: OSTEOPOROSIS
     Dosage: 2 D/F, DAILY (1/D)
     Route: 048

REACTIONS (1)
  - OSTEONECROSIS [None]
